FAERS Safety Report 7935425-0 (Version None)
Quarter: 2011Q4

REPORT INFORMATION
  Report Type: 
  Country: None (occurrence: None)
  Receive Date: 20111122
  Receipt Date: 20111117
  Transmission Date: 20120403
  Serious: Yes (Hospitalization)
  Sender: FDA-Public Use
  Company Number: DE-JNJFOC-20111009101

PATIENT
  Sex: Female
  Weight: 86 kg

DRUGS (5)
  1. PANTOPRAZOLE SODIUM [Concomitant]
     Dates: start: 20110829
  2. COTRIM FORTE EU RHO [Concomitant]
     Dates: start: 20110905
  3. NOVAMINSULFON [Concomitant]
     Dates: start: 20110829
  4. XARELTO [Suspect]
     Indication: THROMBOSIS PROPHYLAXIS
     Route: 048
     Dates: start: 20110829, end: 20110906
  5. XARELTO [Suspect]
     Indication: HIP ARTHROPLASTY
     Route: 048
     Dates: start: 20110829, end: 20110906

REACTIONS (1)
  - EMBOLISM VENOUS [None]
